FAERS Safety Report 7285475-5 (Version None)
Quarter: 2011Q1

REPORT INFORMATION
  Report Type: 
  Country: None (occurrence: None)
  Receive Date: 20110210
  Receipt Date: 20110202
  Transmission Date: 20110831
  Serious: Yes (Other)
  Sender: FDA-Public Use
  Company Number: LB-NOVOPROD-322726

PATIENT
  Age: 68 Year
  Sex: Female
  Weight: 78 kg

DRUGS (3)
  1. VICTOZA [Suspect]
     Indication: DIABETES MELLITUS
     Dosage: 1.2 MG, QD
     Dates: start: 20110109, end: 20110121
  2. ATACAND HCT [Concomitant]
     Indication: HYPERTENSION
     Dosage: 16 /12.5 MG, QD, 1X1
     Dates: start: 20060101
  3. AMLOR [Concomitant]
     Indication: HYPERTENSION
     Dosage: 5 MG, QD 1X1 TAB
     Route: 048
     Dates: start: 20060101

REACTIONS (3)
  - HEADACHE [None]
  - BLOOD PRESSURE INCREASED [None]
  - DIZZINESS [None]
